FAERS Safety Report 7013715-6 (Version None)
Quarter: 2010Q3

REPORT INFORMATION
  Report Type: 
  Country: None (occurrence: None)
  Receive Date: 20100924
  Receipt Date: 20100917
  Transmission Date: 20110219
  Serious: Yes (Death, Other)
  Sender: FDA-Public Use
  Company Number: US-TEVA-246158USA

PATIENT
  Sex: Female

DRUGS (2)
  1. COPAXONE [Suspect]
     Indication: MULTIPLE SCLEROSIS
     Route: 058
  2. VIVAGLOBIN [Suspect]

REACTIONS (1)
  - CEREBROVASCULAR ACCIDENT [None]
